FAERS Safety Report 22164202 (Version 1)
Quarter: 2023Q2

REPORT INFORMATION
  Report Type: Report from Study
  Country: US (occurrence: US)
  Receive Date: 20230402
  Receipt Date: 20230402
  Transmission Date: 20230722
  Serious: Yes (Other)
  Sender: FDA-Public Use
  Company Number: US-ABBVIE-4711240

PATIENT
  Age: 70 Year
  Sex: Female

DRUGS (1)
  1. SKYRIZI [Suspect]
     Active Substance: RISANKIZUMAB-RZAA
     Indication: Psoriatic arthropathy
     Route: 065

REACTIONS (4)
  - Eye disorder [Recovering/Resolving]
  - Pain [Not Recovered/Not Resolved]
  - Walking aid user [Not Recovered/Not Resolved]
  - Femur fracture [Recovering/Resolving]

NARRATIVE: CASE EVENT DATE: 20220401
